FAERS Safety Report 25514771 (Version 6)
Quarter: 2025Q4

REPORT INFORMATION
  Report Type: Report from Study
  Country: US (occurrence: US)
  Receive Date: 20250703
  Receipt Date: 20251017
  Transmission Date: 20260117
  Serious: Yes (Hospitalization)
  Sender: MALLINCKRODT
  Company Number: US-MALLINCKRODT-MNK202504033

PATIENT
  Age: 78 Year
  Sex: Female

DRUGS (3)
  1. CORTICOTROPIN [Suspect]
     Active Substance: CORTICOTROPIN
     Indication: Rheumatoid arthritis
     Dosage: 80 UNITS
     Route: 058
     Dates: start: 202504, end: 2025
  2. CORTICOTROPIN [Suspect]
     Active Substance: CORTICOTROPIN
     Dosage: 40 UNITS
     Route: 058
     Dates: start: 2025, end: 20250804
  3. CORTICOTROPIN [Suspect]
     Active Substance: CORTICOTROPIN
     Dosage: UNKNOWN
     Dates: start: 202509

REACTIONS (8)
  - Salmonella sepsis [Not Recovered/Not Resolved]
  - Dyspnoea [Unknown]
  - Discomfort [Unknown]
  - Gait disturbance [Unknown]
  - Change of bowel habit [Unknown]
  - Gastrointestinal disorder [Unknown]
  - Hyperhidrosis [Unknown]
  - Body temperature increased [Unknown]

NARRATIVE: CASE EVENT DATE: 20250101
